FAERS Safety Report 18472950 (Version 2)
Quarter: 2023Q1

REPORT INFORMATION
  Report Type: Spontaneous
  Country: BR (occurrence: BR)
  Receive Date: 20201106
  Receipt Date: 20230216
  Transmission Date: 20230417
  Serious: Yes (Other)
  Sender: FDA-Public Use
  Company Number: BR-NOVARTISPH-NVSC2020BR278135

PATIENT
  Age: 37 Year
  Sex: Male
  Weight: 70 kg

DRUGS (1)
  1. COSENTYX [Suspect]
     Active Substance: SECUKINUMAB
     Indication: Psoriasis
     Dosage: 150 MG, QW (2 INJECTIONS, STARTED TWO MONTHS AGO AND STOPPED THREE WEEKS AGO)
     Route: 058

REACTIONS (2)
  - Cerebral disorder [Not Recovered/Not Resolved]
  - Aphthous ulcer [Unknown]
